FAERS Safety Report 9704465 (Version 1)
Quarter: 2013Q4

REPORT INFORMATION
  Report Type: Spontaneous
  Country: FR (occurrence: FR)
  Receive Date: 20131122
  Receipt Date: 20131122
  Transmission Date: 20140711
  Serious: Yes (Hospitalization)
  Sender: FDA-Public Use
  Company Number: PHHY2013FR132376

PATIENT
  Age: 78 Year
  Sex: Male

DRUGS (10)
  1. PACLITAXEL EBEWE [Suspect]
     Indication: LUNG ADENOCARCINOMA
     Dosage: 136 MG, UNK
     Route: 042
     Dates: start: 20120220, end: 20120227
  2. PACLITAXEL EBEWE [Suspect]
     Dosage: 126 MG (DAY 8)
  3. VERAPAMIL [Suspect]
     Indication: HYPERTENSION
     Dosage: 240 MG, QD
     Route: 048
  4. CARBOPLATIN HOSPIRA [Suspect]
     Indication: LUNG ADENOCARCINOMA
     Dosage: 534 MG,
     Route: 042
     Dates: start: 20120220, end: 20120220
  5. METFORMIN [Concomitant]
     Indication: DIABETES MELLITUS
     Dosage: 1000 MG, BID
     Route: 048
     Dates: start: 20050318
  6. NOVONORM [Concomitant]
     Indication: DIABETES MELLITUS
     Dosage: 2 MG, TID
     Route: 048
     Dates: start: 20050718
  7. PRAVASTATIN SODIUM [Concomitant]
     Indication: DYSLIPIDAEMIA
     Dosage: 40 MG, QD
     Route: 048
     Dates: start: 20060818
  8. UROREC [Concomitant]
     Indication: BENIGN PROSTATIC HYPERPLASIA
     Dosage: 8 MG, QD
     Route: 048
     Dates: start: 20120215
  9. PERMIXON [Concomitant]
     Indication: MICTURITION DISORDER
     Dosage: 160 MG, BID
     Route: 048
     Dates: start: 19941117
  10. SEROPRAM [Concomitant]
     Dosage: 20 MG, QD
     Route: 048

REACTIONS (1)
  - Pancytopenia [Recovered/Resolved]
